FAERS Safety Report 24137310 (Version 1)
Quarter: 2024Q3

REPORT INFORMATION
  Report Type: Spontaneous
  Country: IT (occurrence: None)
  Receive Date: 20240725
  Receipt Date: 20240725
  Transmission Date: 20241017
  Serious: Yes (Hospitalization, Disabling)
  Sender: ASTRAZENECA
  Company Number: 2024A164955

PATIENT
  Age: 89 Year
  Sex: Female

DRUGS (10)
  1. ONDEXXYA [Suspect]
     Active Substance: ANDEXANET ALFA
     Indication: Haemorrhage
     Dosage: BOLO (2 FIALE 200 MG) (IN 15 MINUTI) INFUSIONE CONTINUA (2 FLACONI + 8 ML--} 480 MG TOTALI) IN ...
     Route: 042
     Dates: start: 20240705, end: 20240705
  2. ONDEXXYA [Suspect]
     Active Substance: ANDEXANET ALFA
     Indication: Haemorrhage
     Dosage: BOLO (2 FIALE 200 MG) (IN 15 MINUTI) INFUSIONE CONTINUA (2 FLACONI + 8 ML--} 480 MG TOTALI) IN ...
     Route: 042
     Dates: start: 20240705, end: 20240705
  3. PIPERACILLIN SODIUM\TAZOBACTAM SODIUM [Concomitant]
     Active Substance: PIPERACILLIN SODIUM\TAZOBACTAM SODIUM
     Dosage: 4.5 G X 3/DAY EV
  4. ATORVASTATIN [Concomitant]
     Active Substance: ATORVASTATIN
     Dosage: 10 MG/DAY
  5. JARDIANCE [Concomitant]
     Active Substance: EMPAGLIFLOZIN
     Dosage: 10 MG 1 CP 12 O^CLOCK
  6. METOPROLOL [Concomitant]
     Active Substance: METOPROLOL
     Dosage: 50 MG X 2/DAY
  7. JANUVIA [Concomitant]
     Active Substance: SITAGLIPTIN PHOSPHATE
     Dosage: 100 MG/DAY
  8. NALOXONE HYDROCHLORIDE\OXYCODONE HYDROCHLORIDE [Concomitant]
     Active Substance: NALOXONE HYDROCHLORIDE\OXYCODONE HYDROCHLORIDE
     Dosage: 10/5 MG 1 CP/DAY
  9. LASIX [Concomitant]
     Active Substance: FUROSEMIDE
     Dosage: 25 MG/DAY
  10. LUVION [Concomitant]
     Dosage: 50 MG/DAY

REACTIONS (2)
  - Peripheral ischaemia [Unknown]
  - Ischaemic stroke [Unknown]

NARRATIVE: CASE EVENT DATE: 20240706
